FAERS Safety Report 4479008-6 (Version None)
Quarter: 2004Q4

REPORT INFORMATION
  Report Type: 
  Country: None (occurrence: None)
  Receive Date: 20041015
  Receipt Date: 20041004
  Transmission Date: 20050328
  Serious: Yes (Hospitalization, Other)
  Sender: FDA-Public Use
  Company Number: URSO-2004-023

PATIENT
  Age: 70 Year
  Sex: Male

DRUGS (1)
  1. URSO 100 (URSODEOXYCHOLIC ACID) [Suspect]
     Indication: CHOLELITHIASIS
     Dosage: 300 MG PO
     Route: 048
     Dates: start: 20040722, end: 20040820

REACTIONS (2)
  - HEPATITIS ACUTE [None]
  - LABORATORY TEST ABNORMAL [None]
